FAERS Safety Report 10366965 (Version 2)
Quarter: 2014Q3

REPORT INFORMATION
  Report Type: Report from Study
  Country: US (occurrence: US)
  Receive Date: 20140807
  Receipt Date: 20140917
  Transmission Date: 20150326
  Serious: Yes (Hospitalization)
  Sender: FDA-Public Use
  Company Number: US-ROCHE-1446338

PATIENT
  Age: 71 Year
  Sex: Male
  Weight: 117.13 kg

DRUGS (11)
  1. ZELBORAF [Suspect]
     Active Substance: VEMURAFENIB
     Dosage: DOSE WAS INCREASED FROM 2 TABLETS TO 4 TABLETS DAILY.
     Route: 048
     Dates: start: 20140830
  2. LOVASTATIN. [Concomitant]
     Active Substance: LOVASTATIN
     Indication: BLOOD CHOLESTEROL INCREASED
     Dosage: IN EVENING
     Route: 048
  3. IRBESARTAN. [Concomitant]
     Active Substance: IRBESARTAN
     Indication: BLOOD PRESSURE
     Route: 048
  4. ASPIRIN. [Concomitant]
     Active Substance: ASPIRIN
     Dosage: 20 YEARS AGO
     Route: 048
  5. NEXIUM [Concomitant]
     Active Substance: ESOMEPRAZOLE MAGNESIUM
     Indication: GASTROOESOPHAGEAL REFLUX DISEASE
     Dosage: 10 YEARS
     Route: 048
  6. DICLOFENAC [Concomitant]
     Active Substance: DICLOFENAC
     Indication: INFLAMMATION
     Dosage: EVENING
     Route: 048
  7. ZELBORAF [Suspect]
     Active Substance: VEMURAFENIB
     Indication: METASTATIC MALIGNANT MELANOMA
     Dosage: 2 TABLETS IN MORNING AND 2 TABLETS IN EVENING
     Route: 048
     Dates: start: 20140724, end: 20140728
  8. ZELBORAF [Suspect]
     Active Substance: VEMURAFENIB
     Dosage: THERAPY RESTARTED WITH 2 TABLETS DAILY
     Route: 048
  9. MAG OXIDE [Concomitant]
     Dosage: 2 IN MORNING, 1 IN EVENING.?2-3 YEARS START DATE
     Route: 048
  10. AMBIEN [Concomitant]
     Active Substance: ZOLPIDEM TARTRATE
     Indication: INSOMNIA
     Dosage: IN EVENING
     Route: 048
  11. MULTAQ [Concomitant]
     Active Substance: DRONEDARONE
     Indication: ARRHYTHMIA
     Dosage: 1 IN MORNING, 1 IN EVENING
     Route: 048
     Dates: start: 2011

REACTIONS (6)
  - Asthenia [Unknown]
  - Blood pressure decreased [Unknown]
  - Pancreatitis [Recovered/Resolved]
  - Feeling cold [Not Recovered/Not Resolved]
  - Ageusia [Not Recovered/Not Resolved]
  - Weight decreased [Unknown]

NARRATIVE: CASE EVENT DATE: 20140729
